FAERS Safety Report 4960295-2 (Version None)
Quarter: 2006Q1

REPORT INFORMATION
  Report Type: 
  Country: None (occurrence: None)
  Receive Date: 20060328
  Receipt Date: 20060320
  Transmission Date: 20060701
  Serious: Yes (Hospitalization)
  Sender: FDA-Public Use
  Company Number: 2006-02-0802

PATIENT
  Sex: Male

DRUGS (2)
  1. TEMODAL [Suspect]
     Indication: GLIOBLASTOMA
     Dosage: 75 MG/M^2 ORAL
     Route: 048
  2. RADIATION THERAPY CONTINUING FOR GLIOBLASTOMA [Concomitant]

REACTIONS (1)
  - PULMONARY EMBOLISM [None]
